FAERS Safety Report 8877236 (Version 1)
Quarter: 2012Q4

REPORT INFORMATION
  Report Type: 
  Country: US (occurrence: US)
  Receive Date: 20121023
  Receipt Date: 20121023
  Transmission Date: 20130627
  Serious: No
  Sender: FDA-Public Use
  Company Number: US-AMGEN-USASP2012058474

PATIENT
  Age: 54 Year
  Sex: Female
  Weight: 69 kg

DRUGS (6)
  1. ENBREL [Suspect]
     Indication: PRODUCT USED FOR UNKNOWN INDICATION
     Dosage: 50 mg, qwk
     Route: 058
  2. METHOTREXATE [Concomitant]
     Dosage: 2.5 mg, UNK
  3. FISH OIL [Concomitant]
     Dosage: UNK
  4. MORTIN [Concomitant]
     Dosage: 400 mg, UNK
  5. BIOTIN [Concomitant]
     Dosage: UNK
  6. CITRACAL                           /00751520/ [Concomitant]
     Dosage: UNK

REACTIONS (2)
  - Headache [Unknown]
  - Pruritus [Unknown]
